FAERS Safety Report 5108297-X (Version None)
Quarter: 2006Q3

REPORT INFORMATION
  Report Type: 
  Country: None (occurrence: None)
  Receive Date: 20060914
  Receipt Date: 20060914
  Transmission Date: 20061208
  Serious: Yes (Hospitalization)
  Sender: FDA-Public Use
  Company Number: None

PATIENT
  Age: 56 Year
  Sex: Female
  Weight: 93.8 kg

DRUGS (6)
  1. AZITHROMYCIN [Suspect]
     Indication: PNEUMONITIS
     Dosage: 500 MG DAILY IV
     Route: 042
     Dates: start: 20060829, end: 20060831
  2. NITROGLYCERIN [Concomitant]
  3. MORPHINE [Concomitant]
  4. HYDROMORPHONE HCL [Concomitant]
  5. CEFTRIAXONE [Concomitant]
  6. METOPROLOL [Concomitant]

REACTIONS (1)
  - TREMOR [None]
